FAERS Safety Report 20267573 (Version 1)
Quarter: 2021Q4

REPORT INFORMATION
  Report Type: Spontaneous
  Country: DE (occurrence: DE)
  Receive Date: 20211231
  Receipt Date: 20211231
  Transmission Date: 20220304
  Serious: Yes (Death)
  Sender: FDA-Public Use
  Company Number: DE-BoehringerIngelheim-2021-BI-146039

PATIENT
  Sex: Male

DRUGS (2)
  1. OFEV [Suspect]
     Active Substance: NINTEDANIB
     Indication: Interstitial lung disease
  2. OXYGEN [Concomitant]
     Active Substance: OXYGEN
     Indication: Interstitial lung disease

REACTIONS (2)
  - Interstitial lung disease [Fatal]
  - Drug ineffective [Unknown]
